FAERS Safety Report 10944724 (Version 1)
Quarter: 2015Q1

REPORT INFORMATION
  Report Type: Spontaneous
  Country: DK (occurrence: None)
  Receive Date: 20150318
  Receipt Date: 20150318
  Transmission Date: 20150721
  Serious: Yes (Life-Threatening, Hospitalization)
  Sender: FDA-Public Use
  Company Number: FK201501178

PATIENT
  Age: 53 Year
  Sex: Female

DRUGS (10)
  1. FLUOROURACIL ACCORD [Suspect]
     Active Substance: FLUOROURACIL
     Indication: COLON CANCER
     Dosage: INTRAVENOUS (NOT OTHERWISE SPECIFIED)
     Route: 042
     Dates: start: 20150209, end: 20150212
  2. OXALIPLATIN 5MG/ML CONCENTRATE FOR SOLUTION FOR INFUSION (OXALIPLATIN) (OXALIPLATIN) [Suspect]
     Active Substance: OXALIPLATIN
     Indication: COLON CANCER
     Dosage: INTRAVENOUS (NOT OTHERWISE SPECIFIED)
     Route: 042
     Dates: start: 20150209, end: 20150212
  3. MAGNESIUM [Concomitant]
     Active Substance: MAGNESIUM
  4. CITALOPRAM [Concomitant]
     Active Substance: CITALOPRAM HYDROBROMIDE
  5. FLUOXETINE [Suspect]
     Active Substance: FLUOXETINE\FLUOXETINE HYDROCHLORIDE
  6. PAMOL (PARACETAMOL) [Concomitant]
  7. IMODIUM (LOPERAMIDHYDROCHLORID) [Concomitant]
  8. TEMESTA (ASTEMIZOLE) [Concomitant]
  9. PREDNISOLONE. [Concomitant]
     Active Substance: PREDNISOLONE
  10. MOTILIUM (DOMPERIDONE) [Concomitant]

REACTIONS (8)
  - Ejection fraction decreased [None]
  - Cardiac failure [None]
  - Dyspnoea [None]
  - Ventricular extrasystoles [None]
  - Hypertension [None]
  - Torsade de pointes [None]
  - Chest pain [None]
  - Stress cardiomyopathy [None]

NARRATIVE: CASE EVENT DATE: 20150212
